FAERS Safety Report 5939891-1 (Version None)
Quarter: 2008Q4

REPORT INFORMATION
  Report Type: 
  Country: None (occurrence: None)
  Receive Date: 20081104
  Receipt Date: 20081031
  Transmission Date: 20090506
  Serious: Yes (Hospitalization)
  Sender: FDA-Public Use
  Company Number: JP-BRISTOL-MYERS SQUIBB COMPANY-14309421

PATIENT
  Age: 48 Year
  Sex: Female

DRUGS (8)
  1. TAXOL [Suspect]
     Indication: BREAST CANCER
     Dosage: STARTED ON 23APR08.LAST ADMINISTRATION ON 22OCT2008;DISCONTINUED STUDY ON 27OCT2008
     Route: 042
     Dates: start: 20080423, end: 20081027
  2. AVASTIN [Suspect]
     Indication: BREAST CANCER
     Dosage: DRUG INTERRUPTED PREVIOUSLY;LAST ADMINISTRATION ON 22OCT2008;DISCONTINUED STUDY ON 27OCT2008
     Route: 042
     Dates: start: 20080423
  3. DECADRON [Suspect]
     Indication: PREMEDICATION
     Route: 042
     Dates: start: 20080423
  4. GRANISETRON HCL [Concomitant]
  5. RANITIDINE HCL [Concomitant]
  6. DIPHENHYDRAMINE HCL [Concomitant]
  7. ZOLEDRONIC ACID [Concomitant]
  8. CLINDAMYCIN PHOSPHATE [Concomitant]

REACTIONS (2)
  - CEREBRAL INFARCTION [None]
  - HYPERTENSION [None]
